FAERS Safety Report 9535843 (Version 2)
Quarter: 2013Q3

REPORT INFORMATION
  Report Type: Report from Study
  Country: GB (occurrence: GB)
  Receive Date: 20130919
  Receipt Date: 20130919
  Transmission Date: 20140515
  Serious: Yes (Life-Threatening, Hospitalization, Other)
  Sender: FDA-Public Use
  Company Number: GB-ASTRAZENECA-2012SE96535

PATIENT
  Age: 27495 Day
  Sex: Female

DRUGS (3)
  1. AZD6140 [Suspect]
     Indication: ACUTE MYOCARDIAL INFARCTION
     Dosage: 180 MG, LOADING DOSE
     Route: 048
     Dates: start: 20121119
  2. AZD6140 [Suspect]
     Indication: ACUTE MYOCARDIAL INFARCTION
     Dosage: 90 MG TWICE DAILY, 30 DAYS ACTIVE TREATMENT
     Route: 048
     Dates: start: 20121119
  3. ASPIRIN [Suspect]
     Indication: ACUTE MYOCARDIAL INFARCTION
     Route: 048
     Dates: start: 20121119

REACTIONS (1)
  - Anaemia [Recovered/Resolved]
